FAERS Safety Report 15941645 (Version 1)
Quarter: 2019Q1

REPORT INFORMATION
  Report Type: Spontaneous
  Country: US (occurrence: US)
  Receive Date: 20190209
  Receipt Date: 20190209
  Transmission Date: 20190417
  Serious: Yes (Death, Hospitalization)
  Sender: FDA-Public Use
  Company Number: None

PATIENT
  Age: 92 Year
  Sex: Female
  Weight: 70.2 kg

DRUGS (1)
  1. LEVAQUIN [Suspect]
     Active Substance: LEVOFLOXACIN
     Indication: BRONCHIAL DISORDER
     Route: 048

REACTIONS (3)
  - General physical condition decreased [None]
  - Feeling abnormal [None]
  - Pleural effusion [None]

NARRATIVE: CASE EVENT DATE: 20160620
